FAERS Safety Report 13613211 (Version 2)
Quarter: 2017Q2

REPORT INFORMATION
  Report Type: Spontaneous
  Country: US (occurrence: US)
  Receive Date: 20170605
  Receipt Date: 20170609
  Transmission Date: 20170830
  Serious: No
  Sender: FDA-Public Use
  Company Number: US-BEH-2017080981

PATIENT
  Age: 14 Year
  Sex: Male

DRUGS (2)
  1. HIZENTRA [Suspect]
     Active Substance: HUMAN IMMUNOGLOBULIN G
     Indication: IMMUNODEFICIENCY COMMON VARIABLE
     Dosage: 4 G, QW
     Route: 058
     Dates: start: 20170414
  2. HIZENTRA [Suspect]
     Active Substance: HUMAN IMMUNOGLOBULIN G
     Dosage: 4 G (20ML), UNK
     Route: 058
     Dates: start: 201601

REACTIONS (4)
  - Infusion site pruritus [Recovered/Resolved]
  - Infusion site erythema [Unknown]
  - Infusion site erythema [Recovered/Resolved]
  - Infusion site swelling [Unknown]

NARRATIVE: CASE EVENT DATE: 20170515
